FAERS Safety Report 21784021 (Version 1)
Quarter: 2022Q4

REPORT INFORMATION
  Report Type: Spontaneous
  Country: US (occurrence: US)
  Receive Date: 20221227
  Receipt Date: 20221227
  Transmission Date: 20230112
  Serious: No
  Sender: FDA-Public Use
  Company Number: US-PFIZER INC-202201391210

PATIENT
  Age: 60 Year
  Sex: Male
  Weight: 176.87 kg

DRUGS (3)
  1. MARCAINE [Suspect]
     Active Substance: BUPIVACAINE HYDROCHLORIDE
     Indication: Rotator cuff syndrome
     Dosage: UNK
     Dates: start: 2000
  2. MARCAINE [Suspect]
     Active Substance: BUPIVACAINE HYDROCHLORIDE
     Indication: Chondroplasty
  3. MARCAINE [Suspect]
     Active Substance: BUPIVACAINE HYDROCHLORIDE
     Indication: Elbow operation

REACTIONS (2)
  - Hypoaesthesia [Unknown]
  - Pain [Unknown]
